FAERS Safety Report 5211170-X (Version None)
Quarter: 2006Q4

REPORT INFORMATION
  Report Type: 
  Country: None (occurrence: None)
  Receive Date: 20061114
  Receipt Date: 20060824
  Transmission Date: 20070319
  Serious: No
  Sender: FDA-Public Use
  Company Number: S06-USA-03447-01

PATIENT
  Age: 74 Year
  Sex: Female

DRUGS (6)
  1. NAMENDA [Suspect]
     Indication: AMNESIA
     Dosage: 5 MG QD PO
     Route: 048
     Dates: start: 20060817, end: 20060823
  2. NAMENDA [Suspect]
     Indication: AMNESIA
     Dosage: 5 MG BID PO
     Route: 048
     Dates: start: 20060824
  3. BENAZEPRIL HYDROCHLORIDE [Concomitant]
  4. ACTONEL [Concomitant]
  5. AMBIEN [Concomitant]
  6. VITAMINS [Concomitant]

REACTIONS (1)
  - PRURITUS [None]
